APPROVED DRUG PRODUCT: ENALAPRIL MALEATE
Active Ingredient: ENALAPRIL MALEATE
Strength: 5MG
Dosage Form/Route: TABLET;ORAL
Application: A075657 | Product #002 | TE Code: AB
Applicant: TARO PHARMACEUTICAL INDUSTRIES LTD
Approved: Jan 23, 2001 | RLD: No | RS: No | Type: RX